FAERS Safety Report 5562953-8 (Version None)
Quarter: 2007Q4

REPORT INFORMATION
  Report Type: 
  Country: None (occurrence: None)
  Receive Date: 20071217
  Receipt Date: 20071207
  Transmission Date: 20080405
  Serious: Yes (Hospitalization)
  Sender: FDA-Public Use
  Company Number: IT-BAYER-200717635GPV

PATIENT
  Age: 57 Year
  Sex: Male

DRUGS (2)
  1. ASPIRIN [Suspect]
     Indication: INFLUENZA
     Dosage: TOTAL DAILY DOSE: 500 MG
     Route: 048
     Dates: start: 20071120, end: 20071120
  2. NIMESULIDE [Suspect]
     Indication: INFLUENZA
     Dosage: TOTAL DAILY DOSE: 200 MG
     Route: 048
     Dates: start: 20071120, end: 20071120

REACTIONS (3)
  - ANAEMIA [None]
  - GASTRITIS HAEMORRHAGIC [None]
  - MELAENA [None]
